FAERS Safety Report 19447700 (Version 1)
Quarter: 2021Q2

REPORT INFORMATION
  Report Type: Spontaneous
  Country: US (occurrence: US)
  Receive Date: 20210622
  Receipt Date: 20210622
  Transmission Date: 20210717
  Serious: No
  Sender: FDA-Public Use
  Company Number: US-THERAPEUTICSMD-2021TMD01561

PATIENT
  Sex: Female
  Weight: 81.65 kg

DRUGS (6)
  1. MAGNESIUM [Concomitant]
     Active Substance: MAGNESIUM
     Dosage: 300 MG, 1X/DAY
  2. IMVEXXY [Suspect]
     Active Substance: ESTRADIOL
     Dosage: 10 ?G, 2X/WEEK
     Route: 067
     Dates: start: 20210420
  3. CAFFEINE. [Concomitant]
     Active Substance: CAFFEINE
  4. IMVEXXY [Suspect]
     Active Substance: ESTRADIOL
     Indication: CYSTITIS
     Dosage: 10 ?G, 2X/WEEK
     Route: 067
     Dates: start: 2021, end: 2021
  5. EXCEDRIN [Concomitant]
     Active Substance: ACETAMINOPHEN\ASPIRIN\CAFFEINE
  6. VITAMIN B2 [Concomitant]
     Active Substance: RIBOFLAVIN
     Dosage: 400 MG, 1X/DAY

REACTIONS (6)
  - Vulvovaginal discomfort [Recovering/Resolving]
  - Off label use [Not Recovered/Not Resolved]
  - Vulvovaginal dryness [Not Recovered/Not Resolved]
  - Urinary incontinence [Not Recovered/Not Resolved]
  - Vaginal discharge [Not Recovered/Not Resolved]
  - Libido decreased [Not Recovered/Not Resolved]

NARRATIVE: CASE EVENT DATE: 2021
